FAERS Safety Report 7316404-3 (Version None)
Quarter: 2011Q1

REPORT INFORMATION
  Report Type: 
  Country: None (occurrence: None)
  Receive Date: 20110225
  Receipt Date: 20110216
  Transmission Date: 20110831
  Serious: Yes (Other)
  Sender: FDA-Public Use
  Company Number: US-ALLERGAN-1100946US

PATIENT
  Age: 54 Year
  Sex: Female

DRUGS (1)
  1. LATISSE [Suspect]
     Indication: GROWTH OF EYELASHES
     Dosage: UNK
     Dates: start: 20101001, end: 20101001

REACTIONS (7)
  - ANAPHYLACTIC REACTION [None]
  - STEVENS-JOHNSON SYNDROME [None]
  - ARTHRALGIA [None]
  - URTICARIA [None]
  - JOINT SWELLING [None]
  - SKIN EXFOLIATION [None]
  - EYELID OEDEMA [None]
